FAERS Safety Report 8299305-6 (Version None)
Quarter: 2012Q2

REPORT INFORMATION
  Report Type: 
  Country: None (occurrence: None)
  Receive Date: 20120419
  Receipt Date: 20120413
  Transmission Date: 20120825
  Serious: No
  Sender: FDA-Public Use
  Company Number: JP-B.I. PHARMACEUTICALS,INC./RIDGEFIELD-2012-BP-06393NB

PATIENT
  Age: 75 Year
  Sex: Male

DRUGS (5)
  1. ADALAT [Concomitant]
     Dosage: 20 MG
     Route: 065
  2. LASIX [Concomitant]
     Dosage: 0.5 MG
     Route: 065
  3. PRADAXA [Suspect]
     Indication: ATRIAL FIBRILLATION
     Dosage: 220 MG
     Route: 048
     Dates: start: 20110516, end: 20120116
  4. PLAVIX [Concomitant]
     Dosage: 75 MG
     Route: 065
  5. ALLOPURINOL [Concomitant]
     Dosage: 200 MG
     Route: 065

REACTIONS (1)
  - BLOOD CREATININE INCREASED [None]
